FAERS Safety Report 20611844 (Version 1)
Quarter: 2022Q1

REPORT INFORMATION
  Report Type: Spontaneous
  Country: FR (occurrence: FR)
  Receive Date: 20220318
  Receipt Date: 20220318
  Transmission Date: 20220423
  Serious: Yes (Other)
  Sender: FDA-Public Use
  Company Number: None

PATIENT
  Age: 60 Year
  Sex: Male
  Weight: 80 kg

DRUGS (5)
  1. COUMADIN [Suspect]
     Active Substance: WARFARIN SODIUM
     Indication: Annuloplasty
     Route: 048
     Dates: start: 20211118, end: 20211128
  2. LOVENOX [Suspect]
     Active Substance: ENOXAPARIN SODIUM
     Indication: Annuloplasty
     Dosage: 1.4 ML, QD
     Route: 058
     Dates: start: 20211118, end: 20211129
  3. FUROSEMIDE [Concomitant]
     Active Substance: FUROSEMIDE
  4. AMIODARONE [Concomitant]
     Active Substance: AMIODARONE
  5. PANTOPRAZOLE SODIUM [Concomitant]
     Active Substance: PANTOPRAZOLE SODIUM

REACTIONS (2)
  - Pericardial haemorrhage [Recovered/Resolved]
  - International normalised ratio increased [Recovered/Resolved]

NARRATIVE: CASE EVENT DATE: 20211129
